FAERS Safety Report 23517354 (Version 1)
Quarter: 2024Q1

REPORT INFORMATION
  Report Type: Spontaneous
  Country: US (occurrence: None)
  Receive Date: 20240212
  Receipt Date: 20240212
  Transmission Date: 20240410
  Serious: Yes (Other)
  Sender: FDA-Public Use
  Company Number: None

PATIENT
  Age: 28 Year
  Sex: Female
  Weight: 60.75 kg

DRUGS (1)
  1. KETAMINE [Suspect]
     Active Substance: KETAMINE
     Indication: Product used for unknown indication
     Dates: start: 20231009, end: 20240109

REACTIONS (6)
  - Anxiety [None]
  - Insomnia [None]
  - Decreased appetite [None]
  - Hypomania [None]
  - Off label use [None]
  - Drug interaction [None]
